FAERS Safety Report 9013086 (Version 2)
Quarter: 2013Q1

REPORT INFORMATION
  Report Type: Spontaneous
  Country: CO (occurrence: CO)
  Receive Date: 20130115
  Receipt Date: 20130125
  Transmission Date: 20140127
  Serious: Yes (Hospitalization)
  Sender: FDA-Public Use
  Company Number: CO-009507513-1301COL003407

PATIENT
  Age: 64 Year
  Sex: Female
  Weight: 57 kg

DRUGS (8)
  1. PEG-INTRON [Suspect]
     Indication: HEPATITIS C
     Dosage: REDIPEN
     Dates: start: 20121024, end: 20121226
  2. PEG-INTRON [Suspect]
     Dosage: UNK
  3. METOCLOPRAMIDE [Concomitant]
  4. OMEPRAZOLE [Concomitant]
  5. LEVOTHYROXINE SODIUM [Concomitant]
  6. HYDROCHLOROTHIAZIDE [Concomitant]
  7. LOSARTAN POTASSIUM [Concomitant]
  8. PROPRANOLOL HYDROCHLORIDE [Concomitant]

REACTIONS (5)
  - Blood sodium decreased [Recovered/Resolved]
  - Vomiting [Recovered/Resolved]
  - Disorientation [Recovered/Resolved]
  - Diarrhoea [Recovered/Resolved]
  - Decreased appetite [Recovered/Resolved]
